FAERS Safety Report 7676971-7 (Version None)
Quarter: 2011Q3

REPORT INFORMATION
  Report Type: 
  Country: None (occurrence: None)
  Receive Date: 20110805
  Receipt Date: 20110721
  Transmission Date: 20111222
  Serious: Yes (Death, Life-Threatening, Hospitalization, Other)
  Sender: FDA-Public Use
  Company Number: 2011MA008257

PATIENT
  Age: 88 Year
  Sex: Male

DRUGS (1)
  1. DICLOFENAC SODIUM EXTENDED-RELEASE TABLETS, 100MG (PUREPAC) (DICOFENAC [Suspect]
     Indication: ABDOMINAL PAIN
     Dosage: 75 MG TID UNK

REACTIONS (8)
  - BLOOD UREA INCREASED [None]
  - GASTRIC ULCER HAEMORRHAGE [None]
  - HEART RATE INCREASED [None]
  - RESPIRATORY FAILURE [None]
  - ACIDOSIS [None]
  - HAEMOGLOBIN DECREASED [None]
  - BLOOD PRESSURE DECREASED [None]
  - PNEUMONIA ASPIRATION [None]
